FAERS Safety Report 15785021 (Version 1)
Quarter: 2019Q1

REPORT INFORMATION
  Report Type: Spontaneous
  Country: US (occurrence: US)
  Receive Date: 20190103
  Receipt Date: 20190103
  Transmission Date: 20190417
  Serious: No
  Sender: FDA-Public Use
  Company Number: US-BAYER-2019-000329

PATIENT
  Age: 58 Year
  Sex: Female
  Weight: 77.1 kg

DRUGS (2)
  1. DULOXETINE. [Concomitant]
     Active Substance: DULOXETINE
  2. MIRALAX [Suspect]
     Active Substance: POLYETHYLENE GLYCOL 3350
     Indication: GASTROINTESTINAL DISORDER
     Dosage: 17G IN 4 TO 8OZ WATER
     Route: 048
     Dates: start: 20181222

REACTIONS (4)
  - Off label use [Unknown]
  - Product use issue [None]
  - Product prescribing error [Unknown]
  - Product use in unapproved indication [None]

NARRATIVE: CASE EVENT DATE: 20181222
